FAERS Safety Report 6391269-5 (Version None)
Quarter: 2009Q4

REPORT INFORMATION
  Report Type: 
  Country: None (occurrence: None)
  Receive Date: 20091007
  Receipt Date: 20090923
  Transmission Date: 20100525
  Serious: Yes (Hospitalization)
  Sender: FDA-Public Use
  Company Number: FR-PFIZER INC-2009272680

PATIENT
  Age: 70 Year

DRUGS (15)
  1. ALDACTAZINE [Suspect]
     Dosage: 0.5 DF, 1X/DAY
     Route: 048
     Dates: start: 20090101, end: 20090830
  2. NEURONTIN [Suspect]
     Dosage: 300 MG, 2X/DAY
     Route: 048
     Dates: start: 20090717, end: 20090830
  3. NISISCO [Suspect]
     Dosage: 1 DF, 1X/DAY
     Route: 048
     Dates: start: 20090301, end: 20090830
  4. GLUCOPHAGE [Concomitant]
     Dosage: 3 G, 1X/DAY
     Dates: end: 20090830
  5. TERCIAN [Concomitant]
     Dosage: 12.5 MG, 1X/DAY
     Dates: end: 20090830
  6. ZOLPIDEM [Concomitant]
     Dosage: 10 MG, 1X/DAY
     Dates: end: 20090830
  7. PAROXETINE HCL [Concomitant]
     Dosage: 1 DF, 1X/DAY
     Dates: end: 20090830
  8. ALPRAZOLAM [Concomitant]
     Dosage: 0.5 MG, 1X/DAY
     Dates: end: 20090830
  9. NOVONORM [Concomitant]
     Dosage: 2 MG, 3X/DAY
     Dates: end: 20090830
  10. INSULIN [Concomitant]
     Dosage: UNK
     Dates: end: 20090830
  11. TAHOR [Concomitant]
     Dosage: 10 MG, 1X/DAY
  12. CORGARD [Concomitant]
     Dosage: 80 MG, 2X/DAY
     Dates: start: 20090717, end: 20090902
  13. EFFERALGAN [Concomitant]
     Dosage: UNK
  14. TRANSIPEG [Concomitant]
     Dosage: UNK
  15. AMLODIPINE [Concomitant]
     Dosage: 10 MG, 1X/DAY
     Dates: start: 20090301

REACTIONS (2)
  - HYPERKALAEMIA [None]
  - RENAL FAILURE ACUTE [None]
